FAERS Safety Report 19808438 (Version 1)
Quarter: 2021Q3

REPORT INFORMATION
  Report Type: Spontaneous
  Country: DE (occurrence: DE)
  Receive Date: 20210909
  Receipt Date: 20210909
  Transmission Date: 20211014
  Serious: Yes (Hospitalization, Other)
  Sender: FDA-Public Use
  Company Number: DE-AUROBINDO-AUR-APL-2021-038117

PATIENT
  Age: 76 Year
  Sex: Male

DRUGS (10)
  1. ATORVASTATIN [Concomitant]
     Active Substance: ATORVASTATIN
     Indication: PRODUCT USED FOR UNKNOWN INDICATION
     Dosage: 40 MILLIGRAM (40 MG, 0?0?1?0) , ONCE A DAY
     Route: 065
  2. PANTOPRAZOL [Concomitant]
     Active Substance: PANTOPRAZOLE SODIUM
     Indication: PRODUCT USED FOR UNKNOWN INDICATION
     Dosage: 40 MILLIGRAM (40 MG, 1?0?0?0 ), ONCE A DAY
     Route: 065
  3. KALIUMCHLORID [Concomitant]
     Active Substance: POTASSIUM CHLORIDE
     Indication: PRODUCT USED FOR UNKNOWN INDICATION
     Dosage: 600 MILLIGRAM (600 MG, 1?0?0?0 ), ONCE A DAY
     Route: 065
  4. BISOPROLOL [Concomitant]
     Active Substance: BISOPROLOL
     Indication: PRODUCT USED FOR UNKNOWN INDICATION
     Dosage: 5 MILLIGRAM (5 MG, 1?0?1?0 ), TWO TIMES A DAY
     Route: 065
  5. RISPERIDONE. [Suspect]
     Active Substance: RISPERIDONE
     Indication: PRODUCT USED FOR UNKNOWN INDICATION
     Dosage: 0.5 MILLIGRAM (1?0?1?0 ), TWO TIMES A DAY
     Route: 065
  6. METFORMIN;SITAGLIPTIN [Concomitant]
     Active Substance: METFORMIN\SITAGLIPTIN
     Indication: PRODUCT USED FOR UNKNOWN INDICATION
     Dosage: UNK UNK,(500|50 MG, 1?0?1?0 ) TWO TIMES A DAY
     Route: 065
  7. INSULIN GLARGINE [Concomitant]
     Active Substance: INSULIN GLARGINE
     Indication: PRODUCT USED FOR UNKNOWN INDICATION
     Dosage: SCHEMA
     Route: 065
  8. TORASEMID [Concomitant]
     Active Substance: TORSEMIDE
     Indication: PRODUCT USED FOR UNKNOWN INDICATION
     Dosage: 20 MILLIGRAM (0?0?1?0 ), ONCE A DAY
     Route: 065
  9. EMPAGLIFLOZIN [Suspect]
     Active Substance: EMPAGLIFLOZIN
     Indication: PRODUCT USED FOR UNKNOWN INDICATION
     Dosage: 10 MILLIGRAM (10 MG, 1?0?0?0 ), ONCE A DAY
     Route: 065
  10. APIXABAN [Concomitant]
     Active Substance: APIXABAN
     Indication: PRODUCT USED FOR UNKNOWN INDICATION
     Dosage: 2.5 MILLIGRAM (2.5 MG, 1?0?0?0 ), ONCE A DAY
     Route: 065

REACTIONS (25)
  - Apnoea [Unknown]
  - Cyanosis [Unknown]
  - Hyperglycaemia [Unknown]
  - Hypotonia [Unknown]
  - Decubitus ulcer [Unknown]
  - Tachycardia [Unknown]
  - Hypotension [Unknown]
  - Dehydration [Unknown]
  - Oedema peripheral [Unknown]
  - Pupils unequal [Unknown]
  - Electrocardiogram abnormal [Unknown]
  - Electrolyte imbalance [Unknown]
  - Condition aggravated [Unknown]
  - Renal impairment [Unknown]
  - Dyspnoea [Unknown]
  - Systemic infection [Unknown]
  - Disorientation [Unknown]
  - Skin irritation [Unknown]
  - Tachypnoea [Unknown]
  - Bradypnoea [Unknown]
  - General physical health deterioration [Unknown]
  - Anuria [Unknown]
  - Skin pressure mark [Unknown]
  - Nuchal rigidity [Unknown]
  - Loss of consciousness [Unknown]
